FAERS Safety Report 4917387-3 (Version None)
Quarter: 2006Q1

REPORT INFORMATION
  Report Type: 
  Country: None (occurrence: None)
  Receive Date: 20060221
  Receipt Date: 20051024
  Transmission Date: 20060701
  Serious: Yes (Hospitalization)
  Sender: FDA-Public Use
  Company Number: FR-GLAXOSMITHKLINE-B0401148A

PATIENT
  Sex: Female

DRUGS (5)
  1. LAMICTAL [Suspect]
     Indication: EPILEPSY
     Route: 048
  2. DEPAKENE [Concomitant]
     Indication: EPILEPSY
     Dosage: 1250MG PER DAY
     Route: 048
  3. TEGRETOL [Concomitant]
     Indication: EPILEPSY
     Dosage: 300MG TWICE PER DAY
     Route: 048
  4. RISPERDAL [Concomitant]
     Dosage: 1MG TWICE PER DAY
     Route: 048
     Dates: start: 20051128
  5. FORLAX [Concomitant]
     Indication: CONSTIPATION
     Dosage: 1SAC TWICE PER DAY
     Route: 048

REACTIONS (2)
  - FOOD INTOLERANCE [None]
  - VOMITING [None]
